FAERS Safety Report 7108406-7 (Version None)
Quarter: 2010Q4

REPORT INFORMATION
  Report Type: 
  Country: None (occurrence: None)
  Receive Date: 20101117
  Receipt Date: 20101111
  Transmission Date: 20110411
  Serious: Yes (Other)
  Sender: FDA-Public Use
  Company Number: A0885886A

PATIENT
  Age: 43 Year
  Sex: Male

DRUGS (5)
  1. ADVAIR DISKUS 100/50 [Suspect]
     Dosage: 1PUFF TWICE PER DAY
     Route: 055
     Dates: start: 20060101
  2. COMBIVENT [Concomitant]
  3. OMNARIS [Concomitant]
  4. SINGULAIR [Concomitant]
  5. ALLEGRA D 24 HOUR [Concomitant]

REACTIONS (3)
  - DRUG ADMINISTRATION ERROR [None]
  - DYSPNOEA [None]
  - PRODUCT QUALITY ISSUE [None]
